FAERS Safety Report 8446171-1 (Version None)
Quarter: 2012Q2

REPORT INFORMATION
  Report Type: 
  Country: None (occurrence: None)
  Receive Date: 20120323
  Receipt Date: 20111013
  Transmission Date: 20120825
  Serious: Yes (Hospitalization)
  Sender: FDA-Public Use
  Company Number: 163-21880-11081464

PATIENT
  Age: 69 Year
  Sex: Male

DRUGS (13)
  1. PRAVACHOL (PRASVASTATIN SODIUM) [Concomitant]
  2. AMBIEN [Concomitant]
  3. ABILIFY (ARIPPRAZOLE) [Concomitant]
  4. PROPRANOLOL [Concomitant]
  5. PRISTIQ (DESCENAFAXINSUCCINARE) [Concomitant]
  6. PRVASTATIN SODIUM (PRAVASTATIN SODIUM) [Concomitant]
  7. POTASSIUM CHLORIDE [Concomitant]
  8. REVLIMID [Suspect]
     Indication: MULTIPLE MYELOMA
     Dosage: SEE IMAGE
     Route: 048
     Dates: start: 20100801
  9. REVLIMID [Suspect]
     Indication: MULTIPLE MYELOMA
     Dosage: SEE IMAGE
     Route: 048
     Dates: start: 20090601
  10. REVLIMID [Suspect]
     Indication: MULTIPLE MYELOMA
     Dosage: SEE IMAGE
     Route: 048
     Dates: start: 20090301
  11. REVLIMID [Suspect]
     Indication: MULTIPLE MYELOMA
     Dosage: SEE IMAGE
     Route: 048
     Dates: start: 20071214
  12. REVLIMID [Suspect]
     Indication: MULTIPLE MYELOMA
     Dosage: SEE IMAGE
     Route: 048
     Dates: start: 20110801
  13. PROTONIX [Concomitant]

REACTIONS (2)
  - RED BLOOD CELL COUNT DECREASED [None]
  - WHITE BLOOD CELL COUNT DECREASED [None]
